FAERS Safety Report 11802768 (Version 1)
Quarter: 2015Q4

REPORT INFORMATION
  Report Type: Spontaneous
  Country: US (occurrence: US)
  Receive Date: 20151204
  Receipt Date: 20151204
  Transmission Date: 20160305
  Serious: Yes (Hospitalization)
  Sender: FDA-Public Use
  Company Number: US-BEH-2014046812

PATIENT
  Sex: Female
  Weight: 85 kg

DRUGS (7)
  1. EPIPEN [Concomitant]
     Active Substance: EPINEPHRINE
  2. PREDNISONE. [Concomitant]
     Active Substance: PREDNISONE
  3. CEFTIN [Concomitant]
     Active Substance: CEFUROXIME AXETIL
  4. BERINERT [Suspect]
     Active Substance: HUMAN C1-ESTERASE INHIBITOR
     Indication: COMPLEMENT FACTOR ABNORMAL
     Dosage: ON DEMAND
     Route: 042
     Dates: start: 20140814
  5. BERINERT [Suspect]
     Active Substance: HUMAN C1-ESTERASE INHIBITOR
     Indication: HEREDITARY ANGIOEDEMA
     Dosage: ON DEMAND
     Route: 042
  6. SODIUM CHLORIDE. [Concomitant]
     Active Substance: SODIUM CHLORIDE
  7. DIPHENHYDRAMINE. [Concomitant]
     Active Substance: DIPHENHYDRAMINE

REACTIONS (1)
  - Drug ineffective [Unknown]
